APPROVED DRUG PRODUCT: MIOSTAT
Active Ingredient: CARBACHOL
Strength: 0.01%
Dosage Form/Route: SOLUTION;INTRAOCULAR
Application: N016968 | Product #001
Applicant: ALCON LABORATORIES INC
Approved: Approved Prior to Jan 1, 1982 | RLD: Yes | RS: Yes | Type: RX